FAERS Safety Report 5625644-0 (Version None)
Quarter: 2008Q1

REPORT INFORMATION
  Report Type: 
  Country: None (occurrence: None)
  Receive Date: 20080207
  Receipt Date: 20080207
  Transmission Date: 20080703
  Serious: Yes (Life-Threatening, Hospitalization)
  Sender: FDA-Public Use
  Company Number: None

PATIENT
  Age: 64 Year
  Sex: Male
  Weight: 122.9248 kg

DRUGS (1)
  1. BENICAR HCT [Suspect]
     Indication: HYPERTENSION
     Dosage: 40 MG/25 MG DAILY PO
     Route: 048
     Dates: start: 20070701, end: 20070915

REACTIONS (5)
  - ANGINA PECTORIS [None]
  - CONTUSION [None]
  - MASS [None]
  - OVERDOSE [None]
  - RENAL IMPAIRMENT [None]
